FAERS Safety Report 7448740-4 (Version None)
Quarter: 2011Q2

REPORT INFORMATION
  Report Type: 
  Country: None (occurrence: None)
  Receive Date: 20110429
  Receipt Date: 20100726
  Transmission Date: 20111010
  Serious: No
  Sender: FDA-Public Use
  Company Number: US-ASTRAZENECA-2010SE34899

PATIENT
  Age: 79 Year
  Sex: Female
  Weight: 58.5 kg

DRUGS (17)
  1. PREMARIN [Concomitant]
  2. ASPIRIN [Concomitant]
  3. CALCIUM [Concomitant]
  4. KLOR-CON [Concomitant]
  5. SPIRONOLACTONE [Concomitant]
  6. LEVOXYL [Concomitant]
  7. VALIUM [Concomitant]
  8. MULTI-VITAMINS [Concomitant]
  9. VITAMIN C [Concomitant]
  10. LANOXIN [Concomitant]
  11. PLAVIX [Suspect]
     Route: 065
     Dates: start: 20100201
  12. LASIX [Concomitant]
  13. VITAMIN E [Concomitant]
  14. WARFARIN SODIUM [Concomitant]
  15. NEXIUM [Suspect]
     Route: 048
  16. ALTACE [Concomitant]
  17. TIOTROPIUM BROMIDE [Concomitant]

REACTIONS (2)
  - BURN OESOPHAGEAL [None]
  - DYSPEPSIA [None]
